FAERS Safety Report 9447680 (Version 1)
Quarter: 2013Q3

REPORT INFORMATION
  Report Type: Spontaneous
  Country: FR (occurrence: FR)
  Receive Date: 20130808
  Receipt Date: 20130808
  Transmission Date: 20140515
  Serious: Yes (Hospitalization)
  Sender: FDA-Public Use
  Company Number: FR-JNJFOC-20130801084

PATIENT
  Age: 83 Year
  Sex: Male

DRUGS (4)
  1. CONTRAMAL [Suspect]
     Indication: PRODUCT USED FOR UNKNOWN INDICATION
     Route: 048
     Dates: start: 20130615, end: 20130705
  2. TAVANIC [Suspect]
     Indication: ABSCESS INTESTINAL
     Route: 048
     Dates: start: 20130626, end: 20130703
  3. AMOXICILLINE [Concomitant]
     Indication: PRODUCT USED FOR UNKNOWN INDICATION
     Route: 065
  4. FLAGYL [Concomitant]
     Indication: ABSCESS INTESTINAL
     Route: 065
     Dates: start: 20130626

REACTIONS (2)
  - Confusional state [Recovered/Resolved]
  - Delirium [Recovered/Resolved]
